FAERS Safety Report 7923782-0 (Version None)
Quarter: 2011Q4

REPORT INFORMATION
  Report Type: 
  Country: None (occurrence: None)
  Receive Date: 20111117
  Receipt Date: 20110208
  Transmission Date: 20120403
  Serious: Yes (Other)
  Sender: FDA-Public Use
  Company Number: US-AMGEN-USASP2011007682

PATIENT
  Age: 60 Year
  Sex: Female

DRUGS (1)
  1. ENBREL [Suspect]
     Indication: RHEUMATOID ARTHRITIS
     Dosage: 50 MG, QWK
     Dates: start: 20100308, end: 20110101

REACTIONS (5)
  - STAPHYLOCOCCAL INFECTION [None]
  - IMPAIRED HEALING [None]
  - WOUND INFECTION [None]
  - EYE INFECTION [None]
  - INJECTION SITE PAIN [None]
